FAERS Safety Report 6544290-8 (Version None)
Quarter: 2010Q1

REPORT INFORMATION
  Report Type: 
  Country: None (occurrence: None)
  Receive Date: 20100120
  Receipt Date: 20100111
  Transmission Date: 20100710
  Serious: Yes (Hospitalization)
  Sender: FDA-Public Use
  Company Number: US-ELI_LILLY_AND_COMPANY-US201001001945

PATIENT
  Sex: Female
  Weight: 58.05 kg

DRUGS (5)
  1. CYMBALTA [Suspect]
     Indication: OBSESSIVE-COMPULSIVE DISORDER
     Dosage: 60 MG, DAILY (1/D)
     Dates: start: 20050101
  2. KLONOPIN [Concomitant]
  3. TRAZODONE [Concomitant]
  4. ANTIHYPERTENSIVES [Concomitant]
  5. MUSCLE RELAXANTS [Concomitant]

REACTIONS (7)
  - ABDOMINAL PAIN [None]
  - BILIARY COLIC [None]
  - CHOLELITHIASIS [None]
  - GASTRITIS [None]
  - GASTROINTESTINAL PAIN [None]
  - HEPATIC ENZYME INCREASED [None]
  - PRURITUS [None]
